FAERS Safety Report 4781060-5 (Version None)
Quarter: 2005Q3

REPORT INFORMATION
  Report Type: 
  Country: None (occurrence: None)
  Receive Date: 20050926
  Receipt Date: 20050912
  Transmission Date: 20060218
  Serious: Yes (Hospitalization, Other)
  Sender: FDA-Public Use
  Company Number: HQWYE400512SEP05

PATIENT
  Age: 30 Year
  Sex: Female

DRUGS (1)
  1. TRIQUILLAR-28 (LEVONORGESTREL/ETHINYL ESTRADIOL/INERT, TABLET) [Suspect]
     Indication: ORAL CONTRACEPTION
     Dosage: 1 TABLET 1X PER 1 DAY; ORAL
     Route: 048
     Dates: start: 20050711, end: 20050801

REACTIONS (7)
  - BLISTER [None]
  - CONJUNCTIVAL HYPERAEMIA [None]
  - ERYTHEMA MULTIFORME [None]
  - ERYTHEMA NODOSUM [None]
  - LICHENIFICATION [None]
  - STEVENS-JOHNSON SYNDROME [None]
  - VULVOVAGINITIS TRICHOMONAL [None]
